FAERS Safety Report 7676434-9 (Version None)
Quarter: 2011Q3

REPORT INFORMATION
  Report Type: 
  Country: None (occurrence: None)
  Receive Date: 20110811
  Receipt Date: 20110802
  Transmission Date: 20111222
  Serious: Yes (Hospitalization, Other)
  Sender: FDA-Public Use
  Company Number: US-KINGPHARMUSA00001-K201100918

PATIENT
  Sex: Male
  Weight: 72.562 kg

DRUGS (8)
  1. BACLOFEN [Suspect]
     Indication: MUSCLE SPASMS
     Dosage: 10 MG, 5X/DAY
     Route: 048
  2. LORTAB [Suspect]
     Indication: PAIN
     Dosage: 10 MG, AS NEEDED
     Route: 048
  3. XANAX [Suspect]
     Indication: ANXIETY
     Dosage: 0.5 MG, BID
     Route: 048
  4. NORVASC [Suspect]
     Indication: BLOOD PRESSURE
     Dosage: 10 MG, QD
     Route: 048
  5. TRAMADOL HCL [Concomitant]
     Indication: PAIN
     Dosage: 50 MG, UNK
  6. NEURONTIN [Suspect]
     Indication: NERVE INJURY
     Dosage: 100 MG, BID
     Route: 048
  7. PLAVIX [Suspect]
     Indication: PROPHYLAXIS
     Dosage: 75 MG, QD
     Route: 048
     Dates: start: 20091201
  8. ALTACE [Suspect]
     Indication: BLOOD PRESSURE
     Dosage: 5 MG, QD
     Route: 048

REACTIONS (3)
  - CONVULSION [None]
  - CARDIAC DISORDER [None]
  - GASTRIC ULCER HAEMORRHAGE [None]
